FAERS Safety Report 9307470 (Version 3)
Quarter: 2013Q2

REPORT INFORMATION
  Report Type: Report from Study
  Country: US (occurrence: US)
  Receive Date: 20130524
  Receipt Date: 20130627
  Transmission Date: 20140414
  Serious: Yes (Death, Other)
  Sender: FDA-Public Use
  Company Number: PHEH2013US011318

PATIENT
  Age: 72 Year
  Sex: Female

DRUGS (2)
  1. AFINITOR [Suspect]
     Indication: BREAST CANCER
     Dosage: 10 MG, QD
     Route: 048
     Dates: start: 20130109
  2. EXEMESTANE [Suspect]
     Indication: BREAST CANCER

REACTIONS (4)
  - Death [Fatal]
  - Small intestinal obstruction [Unknown]
  - Breast cancer [Unknown]
  - Malignant neoplasm progression [Unknown]
